FAERS Safety Report 6583593-8 (Version None)
Quarter: 2010Q1

REPORT INFORMATION
  Report Type: 
  Country: None (occurrence: None)
  Receive Date: 20100216
  Receipt Date: 20100202
  Transmission Date: 20100710
  Serious: No
  Sender: FDA-Public Use
  Company Number: US-BAYER-201013219NA

PATIENT
  Age: 24 Year
  Sex: Female
  Weight: 61 kg

DRUGS (2)
  1. MAGNEVIST [Suspect]
     Indication: ANGIOGRAM
     Dosage: AS USED: 15 ML  UNIT DOSE: 15 ML
     Route: 042
     Dates: start: 20100130, end: 20100130
  2. MAGNEVIST [Suspect]
     Dosage: AS USED: 15 ML  UNIT DOSE: 20 ML
     Route: 042
     Dates: start: 20100130, end: 20100130

REACTIONS (1)
  - URTICARIA [None]
